FAERS Safety Report 14782183 (Version 1)
Quarter: 2018Q2

REPORT INFORMATION
  Report Type: Report from Study
  Country: TR (occurrence: TR)
  Receive Date: 20180420
  Receipt Date: 20180420
  Transmission Date: 20180711
  Serious: Yes (Other)
  Sender: FDA-Public Use
  Company Number: TR-EMD SERONO-9021668

PATIENT
  Age: 12 Year
  Sex: Female

DRUGS (2)
  1. SAIZEN [Suspect]
     Active Substance: SOMATROPIN
     Indication: GROWTH HORMONE DEFICIENCY
     Route: 058
     Dates: start: 20180205, end: 20180214
  2. SAIZEN [Suspect]
     Active Substance: SOMATROPIN
     Dates: start: 20180304

REACTIONS (2)
  - Hydrocephalus [Recovering/Resolving]
  - Papilloedema [Recovering/Resolving]
